FAERS Safety Report 12619026 (Version 1)
Quarter: 2016Q3

REPORT INFORMATION
  Report Type: Spontaneous
  Country: AU (occurrence: AU)
  Receive Date: 20160803
  Receipt Date: 20160803
  Transmission Date: 20161109
  Serious: Yes (Other)
  Sender: FDA-Public Use
  Company Number: AU-BAXALTA-2016BLT005581

PATIENT
  Age: 18 Year
  Sex: Female

DRUGS (5)
  1. CEPROTIN [Suspect]
     Active Substance: PROTEIN C
     Dosage: 2500 U, 2X A WEEK
     Route: 058
     Dates: start: 2014
  2. CEPROTIN [Suspect]
     Active Substance: PROTEIN C
     Indication: PROTEIN C DEFICIENCY
     Dosage: 6000 U, 1X A WEEK
     Route: 042
  3. ENOXAPARIN [Concomitant]
     Active Substance: ENOXAPARIN
     Indication: DEEP VEIN THROMBOSIS
  4. WARFARIN [Concomitant]
     Active Substance: WARFARIN
     Indication: DEEP VEIN THROMBOSIS
  5. CEPROTIN [Suspect]
     Active Substance: PROTEIN C
     Dosage: 5000 U, 1X A WEEK
     Route: 042

REACTIONS (2)
  - Splenic infarction [Recovered/Resolved]
  - Drug dose omission [Recovered/Resolved]
